FAERS Safety Report 4811286-3 (Version None)
Quarter: 2005Q4

REPORT INFORMATION
  Report Type: 
  Country: None (occurrence: None)
  Receive Date: 20051025
  Receipt Date: 20051014
  Transmission Date: 20060501
  Serious: Yes (Death, Hospitalization, Other)
  Sender: FDA-Public Use
  Company Number: 2005-10-0881

PATIENT
  Age: 53 Year
  Sex: Male

DRUGS (2)
  1. PEG-INTERFERON ALFA-2B INJECTABLE [Suspect]
     Indication: HEPATITIS C
     Dosage: 80 MCG QW
     Dates: start: 20030201
  2. RIBAVIRIN [Suspect]
     Indication: HEPATITIS C
     Dosage: 1000 MG DAILY ORAL
     Route: 048
     Dates: start: 20030201

REACTIONS (21)
  - ABDOMINAL PAIN [None]
  - ALANINE AMINOTRANSFERASE DECREASED [None]
  - ARTERIAL OCCLUSIVE DISEASE [None]
  - ARTERITIS [None]
  - ASCITES [None]
  - ASPARTATE AMINOTRANSFERASE DECREASED [None]
  - DIARRHOEA [None]
  - HAEMORRHAGE [None]
  - HEPATIC FAILURE [None]
  - HEPATIC FUNCTION ABNORMAL [None]
  - HEPATORENAL SYNDROME [None]
  - HYPERTENSION [None]
  - ISCHAEMIA [None]
  - METABOLIC ACIDOSIS [None]
  - MUCOSAL INFLAMMATION [None]
  - OEDEMATOUS PANCREATITIS [None]
  - POST PROCEDURAL COMPLICATION [None]
  - PULMONARY OEDEMA [None]
  - RENAL FAILURE [None]
  - VASCULITIS [None]
  - WHITE BLOOD CELL COUNT INCREASED [None]
